FAERS Safety Report 5475352-4 (Version None)
Quarter: 2007Q4

REPORT INFORMATION
  Report Type: 
  Country: None (occurrence: None)
  Receive Date: 20071001
  Receipt Date: 20070917
  Transmission Date: 20080405
  Serious: Yes (Hospitalization, Other)
  Sender: FDA-Public Use
  Company Number: 2007SP018309

PATIENT
  Age: 65 Year
  Sex: Female
  Weight: 70.3075 kg

DRUGS (27)
  1. MIRALAX [Suspect]
     Indication: ANOREXIA
     Dosage: 17 GM; BID; PO; 17 GM;QD; PO, 85 GM; ONCE; PO; 262.5 GM; ONCE; PO
     Route: 048
     Dates: start: 20070716, end: 20070716
  2. MIRALAX [Suspect]
     Indication: CONSTIPATION
     Dosage: 17 GM; BID; PO; 17 GM;QD; PO, 85 GM; ONCE; PO; 262.5 GM; ONCE; PO
     Route: 048
     Dates: start: 20070716, end: 20070716
  3. MIRALAX [Suspect]
     Indication: INTESTINAL OPERATION
     Dosage: 17 GM; BID; PO; 17 GM;QD; PO, 85 GM; ONCE; PO; 262.5 GM; ONCE; PO
     Route: 048
     Dates: start: 20070716, end: 20070716
  4. MIRALAX [Suspect]
     Indication: NAUSEA
     Dosage: 17 GM; BID; PO; 17 GM;QD; PO, 85 GM; ONCE; PO; 262.5 GM; ONCE; PO
     Route: 048
     Dates: start: 20070716, end: 20070716
  5. MIRALAX [Suspect]
     Indication: ANOREXIA
     Dosage: 17 GM; BID; PO; 17 GM;QD; PO, 85 GM; ONCE; PO; 262.5 GM; ONCE; PO
     Route: 048
     Dates: start: 20070725, end: 20070725
  6. MIRALAX [Suspect]
     Indication: CONSTIPATION
     Dosage: 17 GM; BID; PO; 17 GM;QD; PO, 85 GM; ONCE; PO; 262.5 GM; ONCE; PO
     Route: 048
     Dates: start: 20070725, end: 20070725
  7. MIRALAX [Suspect]
     Indication: INTESTINAL OPERATION
     Dosage: 17 GM; BID; PO; 17 GM;QD; PO, 85 GM; ONCE; PO; 262.5 GM; ONCE; PO
     Route: 048
     Dates: start: 20070725, end: 20070725
  8. MIRALAX [Suspect]
     Indication: NAUSEA
     Dosage: 17 GM; BID; PO; 17 GM;QD; PO, 85 GM; ONCE; PO; 262.5 GM; ONCE; PO
     Route: 048
     Dates: start: 20070725, end: 20070725
  9. MIRALAX [Suspect]
     Indication: ANOREXIA
     Dosage: 17 GM; BID; PO; 17 GM;QD; PO, 85 GM; ONCE; PO; 262.5 GM; ONCE; PO
     Route: 048
     Dates: start: 20070101, end: 20070803
  10. MIRALAX [Suspect]
     Indication: CONSTIPATION
     Dosage: 17 GM; BID; PO; 17 GM;QD; PO, 85 GM; ONCE; PO; 262.5 GM; ONCE; PO
     Route: 048
     Dates: start: 20070101, end: 20070803
  11. MIRALAX [Suspect]
     Indication: INTESTINAL OPERATION
     Dosage: 17 GM; BID; PO; 17 GM;QD; PO, 85 GM; ONCE; PO; 262.5 GM; ONCE; PO
     Route: 048
     Dates: start: 20070101, end: 20070803
  12. MIRALAX [Suspect]
     Indication: NAUSEA
     Dosage: 17 GM; BID; PO; 17 GM;QD; PO, 85 GM; ONCE; PO; 262.5 GM; ONCE; PO
     Route: 048
     Dates: start: 20070101, end: 20070803
  13. MIRALAX [Suspect]
     Indication: ANOREXIA
     Dosage: 17 GM; BID; PO; 17 GM;QD; PO, 85 GM; ONCE; PO; 262.5 GM; ONCE; PO
     Route: 048
     Dates: start: 20070531
  14. MIRALAX [Suspect]
     Indication: CONSTIPATION
     Dosage: 17 GM; BID; PO; 17 GM;QD; PO, 85 GM; ONCE; PO; 262.5 GM; ONCE; PO
     Route: 048
     Dates: start: 20070531
  15. MIRALAX [Suspect]
     Indication: INTESTINAL OPERATION
     Dosage: 17 GM; BID; PO; 17 GM;QD; PO, 85 GM; ONCE; PO; 262.5 GM; ONCE; PO
     Route: 048
     Dates: start: 20070531
  16. MIRALAX [Suspect]
     Indication: NAUSEA
     Dosage: 17 GM; BID; PO; 17 GM;QD; PO, 85 GM; ONCE; PO; 262.5 GM; ONCE; PO
     Route: 048
     Dates: start: 20070531
  17. AMITIZA [Suspect]
     Indication: CONSTIPATION
     Dates: start: 20070803, end: 20070807
  18. LISINOPRIL AND HYDROCHLOROTHIAZIDE [Concomitant]
  19. DILTIAZEM HCL [Concomitant]
  20. ZOCOR [Concomitant]
  21. ESTROGEN [Concomitant]
  22. REQUIP [Concomitant]
  23. ULTRAM [Concomitant]
  24. METRONIDAZOLE [Concomitant]
  25. LIDODERM [Concomitant]
  26. ANALGESIC COMBINATION [Concomitant]
  27. MAGNESIUM CITRATE [Concomitant]

REACTIONS (13)
  - ANOREXIA [None]
  - COLITIS ISCHAEMIC [None]
  - CONSTIPATION [None]
  - DEHYDRATION [None]
  - DIARRHOEA [None]
  - EARLY SATIETY [None]
  - GASTROINTESTINAL DISORDER [None]
  - HAEMATOCHEZIA [None]
  - MUSCLE SPASMS [None]
  - NAUSEA [None]
  - PYREXIA [None]
  - RETCHING [None]
  - VOMITING [None]
